FAERS Safety Report 22104634 (Version 1)
Quarter: 2023Q1

REPORT INFORMATION
  Report Type: Report from Study
  Country: US (occurrence: US)
  Receive Date: 20230316
  Receipt Date: 20230316
  Transmission Date: 20230418
  Serious: Yes (Other)
  Sender: FDA-Public Use
  Company Number: US-PFIZER INC-PV202300047315

PATIENT
  Age: 80 Year
  Sex: Female
  Weight: 81.633 kg

DRUGS (6)
  1. FUROSEMIDE [Suspect]
     Active Substance: FUROSEMIDE
     Dosage: UNK
  2. TREPROSTINIL [Suspect]
     Active Substance: TREPROSTINIL
     Indication: Pulmonary arterial hypertension
     Dosage: UNK
     Route: 055
     Dates: start: 20230112
  3. TREPROSTINIL [Suspect]
     Active Substance: TREPROSTINIL
     Dosage: 32 UG, 4X/DAY
     Route: 055
  4. TREPROSTINIL [Suspect]
     Active Substance: TREPROSTINIL
     Dosage: 48 UG, 4X/DAY (32 UG+16 UG)
     Route: 055
  5. TYVASO [Suspect]
     Active Substance: TREPROSTINIL
     Indication: Pulmonary arterial hypertension
     Dosage: 32 UG, 4X/DAY
     Route: 055
  6. TYVASO [Suspect]
     Active Substance: TREPROSTINIL
     Dosage: 48 UG, 4X/DAY
     Route: 055

REACTIONS (9)
  - Foreign body in throat [Unknown]
  - Diabetes mellitus [Unknown]
  - Throat irritation [Recovering/Resolving]
  - Cough [Unknown]
  - Drug hypersensitivity [Unknown]
  - Weight decreased [Unknown]
  - Vomiting [Unknown]
  - Diarrhoea [Unknown]
  - Fluid retention [Unknown]

NARRATIVE: CASE EVENT DATE: 20230101
